FAERS Safety Report 9126414 (Version 2)
Quarter: 2013Q2

REPORT INFORMATION
  Report Type: Spontaneous
  Country: US (occurrence: US)
  Receive Date: 20130228
  Receipt Date: 20130411
  Transmission Date: 20140414
  Serious: No
  Sender: FDA-Public Use
  Company Number: US-BIOGENIDEC-2013BI018331

PATIENT
  Age: 33 Year
  Sex: Female
  Weight: 90 kg

DRUGS (9)
  1. TYSABRI [Suspect]
     Indication: RELAPSING-REMITTING MULTIPLE SCLEROSIS
     Route: 042
     Dates: start: 20070808
  2. AVONEX [Concomitant]
     Indication: MULTIPLE SCLEROSIS
     Route: 030
  3. SERTRALINE [Concomitant]
     Route: 048
  4. VICODIN [Concomitant]
     Indication: PAIN
     Route: 048
     Dates: start: 20130313
  5. B COMPLEX [Concomitant]
     Route: 048
  6. TIZANIDINE [Concomitant]
     Route: 048
  7. IBUPROFEN [Concomitant]
     Route: 048
     Dates: start: 20130313
  8. IRON [Concomitant]
     Route: 048
  9. BENADRYL [Concomitant]
     Route: 042

REACTIONS (9)
  - Micturition urgency [Unknown]
  - Pollakiuria [Unknown]
  - Muscle spasticity [Unknown]
  - Gait disturbance [Unknown]
  - Immunodeficiency [Not Recovered/Not Resolved]
  - Adverse drug reaction [Not Recovered/Not Resolved]
  - Fall [Recovered/Resolved]
  - Fatigue [Unknown]
  - Uterine dilation and curettage [Recovered/Resolved]
